FAERS Safety Report 23595081 (Version 1)
Quarter: 2024Q1

REPORT INFORMATION
  Report Type: Spontaneous
  Country: SE (occurrence: SE)
  Receive Date: 20240305
  Receipt Date: 20240305
  Transmission Date: 20240409
  Serious: Yes (Hospitalization, Other)
  Sender: FDA-Public Use
  Company Number: SE-AMGEN-SWESP2024041488

PATIENT
  Age: 17 Year
  Sex: Female

DRUGS (6)
  1. FILGRASTIM [Suspect]
     Active Substance: FILGRASTIM
     Indication: Autologous haematopoietic stem cell transplant
     Dosage: 5-10 MICROG/KG/DAY OVER 6-7 DAYS
     Route: 065
  2. CYCLOPHOSPHAMIDE [Concomitant]
     Active Substance: CYCLOPHOSPHAMIDE
     Dosage: 2 GRAM PER SQUARE METRE
  3. CARMUSTINE [Concomitant]
     Active Substance: CARMUSTINE
     Dosage: 300 MILLIGRAM/SQ. METER
  4. ETOPOSIDE [Concomitant]
     Active Substance: ETOPOSIDE
     Dosage: UNK MILLIGRAM/SQ. METER
  5. CYTARABINE [Concomitant]
     Active Substance: CYTARABINE
     Dosage: 800 MILLIGRAM/SQ. METER
  6. MELPHALAN [Concomitant]
     Active Substance: MELPHALAN
     Dosage: 140 MILLIGRAM/SQ. METER

REACTIONS (3)
  - Multiple sclerosis [Unknown]
  - Colitis [Unknown]
  - Infection [Unknown]
